FAERS Safety Report 6346234-0 (Version None)
Quarter: 2009Q3

REPORT INFORMATION
  Report Type: 
  Country: None (occurrence: None)
  Receive Date: 20090909
  Receipt Date: 20090903
  Transmission Date: 20100115
  Serious: Yes (Life-Threatening, Hospitalization, Other)
  Sender: FDA-Public Use
  Company Number: PHEH2009US09920

PATIENT
  Sex: Female
  Weight: 63.5 kg

DRUGS (4)
  1. TEKTURNA [Suspect]
     Indication: HYPERTENSION
     Dosage: 150 MG, QD
     Route: 048
     Dates: start: 20090817, end: 20090820
  2. AVALIDE [Concomitant]
     Indication: BLOOD PRESSURE MANAGEMENT
     Dosage: 300/25MG, QHS
     Route: 048
     Dates: start: 20070618
  3. TOPROL-XL [Concomitant]
     Dosage: 50 MG, BID
     Route: 048
     Dates: start: 20050121
  4. TENEX [Concomitant]
     Dosage: 2 TABLETS, DAILY
     Route: 048
     Dates: start: 20050121

REACTIONS (28)
  - ALANINE AMINOTRANSFERASE INCREASED [None]
  - ASPARTATE AMINOTRANSFERASE INCREASED [None]
  - ATRIAL FIBRILLATION [None]
  - BLOOD ALBUMIN DECREASED [None]
  - BLOOD CREATININE INCREASED [None]
  - BLOOD GLUCOSE INCREASED [None]
  - BLOOD MAGNESIUM DECREASED [None]
  - BLOOD POTASSIUM INCREASED [None]
  - BLOOD SODIUM DECREASED [None]
  - BLOOD UREA INCREASED [None]
  - BRADYCARDIA [None]
  - BRAIN NATRIURETIC PEPTIDE INCREASED [None]
  - BUNDLE BRANCH BLOCK LEFT [None]
  - CARBON DIOXIDE DECREASED [None]
  - DIASTOLIC DYSFUNCTION [None]
  - DIZZINESS [None]
  - DYSPNOEA [None]
  - GAMMA-GLUTAMYLTRANSFERASE INCREASED [None]
  - GLOMERULAR FILTRATION RATE DECREASED [None]
  - MEAN PLATELET VOLUME DECREASED [None]
  - METAMYELOCYTE COUNT INCREASED [None]
  - MONOCYTE COUNT DECREASED [None]
  - PALPITATIONS [None]
  - PROTEIN TOTAL DECREASED [None]
  - RENAL ARTERY STENOSIS [None]
  - SYNCOPE [None]
  - VENTRICULAR EXTRASYSTOLES [None]
  - VENTRICULAR HYPERTROPHY [None]
